FAERS Safety Report 19559518 (Version 1)
Quarter: 2021Q3

REPORT INFORMATION
  Report Type: Spontaneous
  Country: JP (occurrence: JP)
  Receive Date: 20210715
  Receipt Date: 20210715
  Transmission Date: 20211014
  Serious: Yes (Death)
  Sender: FDA-Public Use
  Company Number: JP-COLLEGIUM PHARMACEUTICAL, INC.-2021CGM00834

PATIENT
  Age: 9 Decade
  Sex: Male

DRUGS (2)
  1. TAPENTADOL [Suspect]
     Active Substance: TAPENTADOL
     Indication: PRODUCT USED FOR UNKNOWN INDICATION
     Dosage: 25 MG, 2X/DAY
     Route: 048
  2. TAPENTADOL [Suspect]
     Active Substance: TAPENTADOL
     Dosage: 75 MG, 2X/DAY
     Route: 048

REACTIONS (1)
  - Death [Fatal]
